FAERS Safety Report 5955839-8 (Version None)
Quarter: 2008Q4

REPORT INFORMATION
  Report Type: 
  Country: None (occurrence: None)
  Receive Date: 20081117
  Receipt Date: 20081105
  Transmission Date: 20090506
  Serious: Yes (Other)
  Sender: FDA-Public Use
  Company Number: DE-PFIZER INC-2008094204

PATIENT
  Sex: Female

DRUGS (2)
  1. SUTENT [Suspect]
     Indication: RENAL CELL CARCINOMA
     Dosage: DAILY DOSE:25MG
     Route: 048
  2. SUTENT [Suspect]
     Dosage: DAILY DOSE:12.5MG
     Route: 048

REACTIONS (1)
  - POLYNEUROPATHY [None]
